FAERS Safety Report 15501565 (Version 5)
Quarter: 2025Q4

REPORT INFORMATION
  Report Type: Report from Study
  Country: JP (occurrence: JP)
  Receive Date: 20181015
  Receipt Date: 20251110
  Transmission Date: 20260118
  Serious: No
  Sender: BIOGEN
  Company Number: JP-BIOGEN-2018BI00646043

PATIENT
  Age: 30 Year
  Sex: Male
  Weight: 46.3 kg

DRUGS (9)
  1. SPINRAZA [Suspect]
     Active Substance: NUSINERSEN
     Indication: Spinal muscular atrophy
     Dates: start: 20181010, end: 20181010
  2. SPINRAZA [Suspect]
     Active Substance: NUSINERSEN
     Dates: start: 20181106, end: 20181106
  3. SPINRAZA [Suspect]
     Active Substance: NUSINERSEN
     Dates: start: 20190116, end: 20190116
  4. SPINRAZA [Suspect]
     Active Substance: NUSINERSEN
  5. SPINRAZA [Suspect]
     Active Substance: NUSINERSEN
     Dates: start: 20200220
  6. SPINRAZA [Suspect]
     Active Substance: NUSINERSEN
     Dates: start: 20200827
  7. SPINRAZA [Suspect]
     Active Substance: NUSINERSEN
     Dates: start: 20210930
  8. SPINRAZA [Suspect]
     Active Substance: NUSINERSEN
     Dates: start: 20220408
  9. XYLOCAINE [Concomitant]
     Active Substance: LIDOCAINE HYDROCHLORIDE
     Indication: Anaesthesia procedure
     Dosage: FREQUENCY TEXT:AT EACH SPINRAZA ADMINISTRATION

REACTIONS (3)
  - Headache [Recovered/Resolved]
  - Nausea [Recovered/Resolved]
  - Inappropriate schedule of product administration [Unknown]

NARRATIVE: CASE EVENT DATE: 20181011
